FAERS Safety Report 7169808-6 (Version None)
Quarter: 2010Q4

REPORT INFORMATION
  Report Type: 
  Country: None (occurrence: None)
  Receive Date: 20101214
  Receipt Date: 20101214
  Transmission Date: 20110411
  Serious: Yes (Other)
  Sender: FDA-Public Use
  Company Number: None

PATIENT
  Age: 14 Year
  Sex: Female
  Weight: 58.9676 kg

DRUGS (7)
  1. REMICADE [Suspect]
     Indication: JUVENILE ARTHRITIS
     Dosage: 300 MG 4 WEEKS IV DRIP
     Route: 041
     Dates: start: 20100210, end: 20101119
  2. REMICADE [Suspect]
     Indication: SPONDYLITIS
     Dosage: 300 MG 4 WEEKS IV DRIP
     Route: 041
     Dates: start: 20100210, end: 20101119
  3. METHOTREXATE [Concomitant]
  4. FOLIC ACID [Concomitant]
  5. PRILOSEC [Concomitant]
  6. MOBIC [Concomitant]
  7. VITAMIN D [Concomitant]

REACTIONS (2)
  - DRUG INEFFECTIVE [None]
  - PRODUCT QUALITY ISSUE [None]
